FAERS Safety Report 5489902-5 (Version None)
Quarter: 2007Q4

REPORT INFORMATION
  Report Type: 
  Country: None (occurrence: None)
  Receive Date: 20071018
  Receipt Date: 20071008
  Transmission Date: 20080405
  Serious: Yes (Hospitalization)
  Sender: FDA-Public Use
  Company Number: IT-PFIZER INC-2007082254

PATIENT
  Sex: Male

DRUGS (5)
  1. SUTENT [Suspect]
     Indication: METASTASES TO LUNG
     Dosage: DAILY DOSE:37MG-FREQ:DAILY
     Route: 048
     Dates: start: 20070913, end: 20070915
  2. ESOMEPRAZOLE [Concomitant]
     Route: 048
  3. ZESTORETIC [Concomitant]
     Route: 048
  4. IBUSTRIN [Concomitant]
     Route: 048
  5. ALLOPURINOL [Concomitant]
     Route: 048

REACTIONS (3)
  - ABDOMINAL PAIN [None]
  - HYPOTENSION [None]
  - MALAISE [None]
